FAERS Safety Report 9375366 (Version 1)
Quarter: 2013Q2

REPORT INFORMATION
  Report Type: Spontaneous
  Country: SE (occurrence: SE)
  Receive Date: 20130628
  Receipt Date: 20130628
  Transmission Date: 20140414
  Serious: Yes (Hospitalization, Other)
  Sender: FDA-Public Use
  Company Number: SE-BRISTOL-MYERS SQUIBB COMPANY-18921288

PATIENT
  Age: 78 Year
  Sex: Female

DRUGS (2)
  1. COAPROVEL [Suspect]
  2. LISINOPRIL [Suspect]

REACTIONS (4)
  - Renal failure acute [Unknown]
  - Fall [Unknown]
  - Fibula fracture [Unknown]
  - Abdominal hernia [Unknown]
